FAERS Safety Report 4807169-5 (Version None)
Quarter: 2005Q4

REPORT INFORMATION
  Report Type: 
  Country: None (occurrence: None)
  Receive Date: 20051019
  Receipt Date: 20051003
  Transmission Date: 20060501
  Serious: No
  Sender: FDA-Public Use
  Company Number: DSA_27228_2005

PATIENT
  Age: 48 Year
  Sex: Male

DRUGS (11)
  1. ENALAPRIL MALEATE [Suspect]
     Indication: SECONDARY HYPERTENSION
     Dosage: 10 MG Q DAY PO
     Route: 048
     Dates: start: 20050804, end: 20050805
  2. AMIODARONE HYDROCHLORIDE [Concomitant]
  3. ASPIRIN [Concomitant]
  4. ATORVASTATIN CALCIUM [Concomitant]
  5. BORAGE OIL (+) FLAXSEED (+) OMEGA-3 MARI [Concomitant]
  6. CANRENOATE POTASSIUM [Concomitant]
  7. CASSIA FISTULA (+) CORIANDER (+) GLYCYRR [Concomitant]
  8. DIGOXIN [Concomitant]
  9. FUROSEMIDE [Concomitant]
  10. INSULIN HUMAN [Concomitant]
  11. OMEPRAZOLE [Concomitant]

REACTIONS (1)
  - RECTAL HAEMORRHAGE [None]
